FAERS Safety Report 9343384 (Version 1)
Quarter: 2013Q2

REPORT INFORMATION
  Report Type: Spontaneous
  Country: US (occurrence: US)
  Receive Date: 20130612
  Receipt Date: 20130612
  Transmission Date: 20140414
  Serious: Yes (Hospitalization)
  Sender: FDA-Public Use
  Company Number: US-ASTRAZENECA-2013SE41348

PATIENT
  Sex: 0

DRUGS (2)
  1. BRILINTA [Suspect]
     Route: 048
  2. UNKNOWN [Concomitant]
     Route: 065

REACTIONS (1)
  - Device occlusion [Unknown]
